FAERS Safety Report 25191410 (Version 1)
Quarter: 2025Q2

REPORT INFORMATION
  Report Type: Spontaneous
  Country: US (occurrence: None)
  Receive Date: 20250410
  Receipt Date: 20250410
  Transmission Date: 20250716
  Serious: Yes (Death, Life-Threatening, Hospitalization)
  Sender: FDA-CTU
  Company Number: None

PATIENT
  Age: 55 Year
  Sex: Male

DRUGS (1)
  1. ROCEPHIN [Suspect]
     Active Substance: CEFTRIAXONE SODIUM
     Indication: Urinary tract infection

REACTIONS (4)
  - Anaphylactic shock [None]
  - Cardiac arrest [None]
  - Taste disorder [None]
  - Cough [None]

NARRATIVE: CASE EVENT DATE: 20250404
